FAERS Safety Report 5151154-3 (Version None)
Quarter: 2006Q4

REPORT INFORMATION
  Report Type: 
  Country: None (occurrence: None)
  Receive Date: 20061113
  Receipt Date: 20061113
  Transmission Date: 20070319
  Serious: Yes (Hospitalization)
  Sender: FDA-Public Use
  Company Number: None

PATIENT
  Age: 44 Year
  Sex: Male
  Weight: 81.6 kg

DRUGS (1)
  1. TYLENOL W/ CODEINE NO. 3 [Suspect]
     Indication: DRUG USE FOR UNKNOWN INDICATION
     Dosage: PO
     Route: 048

REACTIONS (9)
  - AFFECTIVE DISORDER [None]
  - DEPRESSION [None]
  - DRUG ABUSER [None]
  - ECONOMIC PROBLEM [None]
  - OVERDOSE [None]
  - POLYSUBSTANCE DEPENDENCE [None]
  - PSYCHOTIC DISORDER [None]
  - SUICIDAL IDEATION [None]
  - TREATMENT NONCOMPLIANCE [None]
